FAERS Safety Report 10925870 (Version 1)
Quarter: 2015Q1

REPORT INFORMATION
  Report Type: Spontaneous
  Country: US (occurrence: US)
  Receive Date: 20150318
  Receipt Date: 20150318
  Transmission Date: 20150721
  Serious: No
  Sender: FDA-Public Use
  Company Number: US-009507513-1503USA003993

PATIENT
  Sex: Female

DRUGS (1)
  1. NEXPLANON [Suspect]
     Active Substance: ETONOGESTREL
     Dosage: 68 MG, (1 ROD, EVERY THREE YEARS)
     Route: 059

REACTIONS (3)
  - Menstrual disorder [Unknown]
  - Mood altered [Unknown]
  - Infection susceptibility increased [Unknown]
